FAERS Safety Report 21908379 (Version 1)
Quarter: 2023Q1

REPORT INFORMATION
  Report Type: Spontaneous
  Country: US (occurrence: None)
  Receive Date: 20230124
  Receipt Date: 20230124
  Transmission Date: 20230417
  Serious: Yes (Hospitalization)
  Sender: FDA-Public Use
  Company Number: None

PATIENT
  Sex: Female

DRUGS (2)
  1. DOFETILIDE [Suspect]
     Active Substance: DOFETILIDE
     Indication: Atrial fibrillation
     Dosage: OTHER STRENGTH : 250MCG;?OTHER QUANTITY : 250 MCG;?FREQUENCY : TWICE A DAY;?
     Route: 048
     Dates: start: 202105
  2. DOFETILIDE [Suspect]
     Active Substance: DOFETILIDE
     Indication: Myocarditis

REACTIONS (2)
  - Dyspnoea [None]
  - Atrial fibrillation [None]
